FAERS Safety Report 6754718-6 (Version None)
Quarter: 2010Q2

REPORT INFORMATION
  Report Type: 
  Country: None (occurrence: None)
  Receive Date: 20100601
  Receipt Date: 20100517
  Transmission Date: 20101027
  Serious: Yes (Other)
  Sender: FDA-Public Use
  Company Number: 012158

PATIENT
  Sex: Female

DRUGS (4)
  1. VIMPAT [Suspect]
     Dosage: (100 MG BID), (100 MG, 100 MG IN THE MORNING)
     Dates: end: 20100430
  2. VIMPAT [Suspect]
     Dosage: (100 MG BID), (100 MG, 100 MG IN THE MORNING)
     Dates: start: 20100504, end: 20100504
  3. KEPPRA [Concomitant]
  4. LAMICTAL [Concomitant]

REACTIONS (1)
  - STATUS EPILEPTICUS [None]
